FAERS Safety Report 12902673 (Version 1)
Quarter: 2016Q4

REPORT INFORMATION
  Report Type: Spontaneous
  Country: US (occurrence: US)
  Receive Date: 20161102
  Receipt Date: 20161102
  Transmission Date: 20170207
  Serious: No
  Sender: FDA-Public Use
  Company Number: US-GLAXOSMITHKLINE-US2016161230

PATIENT
  Age: 86 Year
  Sex: Female

DRUGS (2)
  1. VOLTAREN [Suspect]
     Active Substance: DICLOFENAC SODIUM
     Indication: MUSCULOSKELETAL PAIN
     Dosage: UNK UNK, BID
     Route: 061
     Dates: start: 201610, end: 20161020
  2. VOLTAREN [Suspect]
     Active Substance: DICLOFENAC SODIUM
     Indication: ARTHRITIS
     Dosage: UNK
     Route: 061
     Dates: start: 2015

REACTIONS (9)
  - Pruritus [Recovering/Resolving]
  - Application site pruritus [Recovering/Resolving]
  - Product use issue [Unknown]
  - Rash [Recovering/Resolving]
  - Off label use [Unknown]
  - Application site rash [Recovering/Resolving]
  - Gingivitis [Not Recovered/Not Resolved]
  - Application site erythema [Unknown]
  - Drug administered at inappropriate site [Unknown]

NARRATIVE: CASE EVENT DATE: 201610
